FAERS Safety Report 16230780 (Version 1)
Quarter: 2019Q2

REPORT INFORMATION
  Report Type: Spontaneous
  Country: JP (occurrence: JP)
  Receive Date: 20190423
  Receipt Date: 20190423
  Transmission Date: 20190711
  Serious: Yes (Hospitalization, Other)
  Sender: FDA-Public Use
  Company Number: JP-PFIZER INC-2019056029

PATIENT
  Age: 25 Year
  Sex: Male

DRUGS (2)
  1. BENEFIX [Suspect]
     Active Substance: COAGULATION FACTOR IX RECOMBINANT HUMAN\ISOPROPYL ALCOHOL
     Indication: FACTOR IX DEFICIENCY
     Dosage: 1000 UNIT PER DAY
     Route: 042
  2. BENEFIX [Suspect]
     Active Substance: COAGULATION FACTOR IX RECOMBINANT HUMAN\ISOPROPYL ALCOHOL
     Indication: HAEMOPHILIA
     Dosage: 2000 IU, DAILY
     Route: 042
     Dates: start: 2010

REACTIONS (3)
  - Muscle haemorrhage [Recovered/Resolved]
  - Haemorrhage [Recovered/Resolved]
  - Cystitis haemorrhagic [Recovered/Resolved]

NARRATIVE: CASE EVENT DATE: 2010
